FAERS Safety Report 18207148 (Version 2)
Quarter: 2020Q3

REPORT INFORMATION
  Report Type: Spontaneous
  Country: JP (occurrence: JP)
  Receive Date: 20200828
  Receipt Date: 20200909
  Transmission Date: 20201103
  Serious: No
  Sender: FDA-Public Use
  Company Number: JP-UCBSA-2020033758

PATIENT
  Sex: Female

DRUGS (6)
  1. RITODRINE [Concomitant]
     Active Substance: RITODRINE
     Indication: SHORTENED CERVIX
     Dosage: UNK
     Dates: start: 201812, end: 2019
  2. LUTINUS [Concomitant]
     Active Substance: PROGESTERONE
     Indication: SHORTENED CERVIX
     Dosage: UNK
  3. UTEMERIN [Concomitant]
     Active Substance: RITODRINE
     Indication: SHORTENED CERVIX
     Dosage: UNK
     Dates: start: 20190104, end: 20190125
  4. XYZAL [Suspect]
     Active Substance: LEVOCETIRIZINE DIHYDROCHLORIDE
     Indication: PRURITUS
     Dosage: 5 MILLIGRAM, ONCE DAILY (QD)
     Route: 048
     Dates: start: 20190125, end: 20190221
  5. FEXOFENADINE HYDROCHLORIDE. [Concomitant]
     Active Substance: FEXOFENADINE HYDROCHLORIDE
     Indication: PRODUCT USED FOR UNKNOWN INDICATION
     Dosage: UNK
     Dates: start: 20190125, end: 20190221
  6. PROGESTERONE. [Concomitant]
     Active Substance: PROGESTERONE
     Indication: LABOUR INDUCTION
     Dosage: 200 MG, ONCE DAILY
     Route: 067

REACTIONS (1)
  - Maternal exposure during pregnancy [Unknown]
